FAERS Safety Report 6648629-4 (Version None)
Quarter: 2010Q1

REPORT INFORMATION
  Report Type: 
  Country: None (occurrence: None)
  Receive Date: 20100319
  Receipt Date: 20100304
  Transmission Date: 20100710
  Serious: Yes (Death, Hospitalization, Other)
  Sender: FDA-Public Use
  Company Number: A-US2010-33901

PATIENT
  Age: 36 Year
  Sex: Female

DRUGS (2)
  1. VENTAVIS [Suspect]
     Indication: PULMONARY HYPERTENSION
     Dosage: 0.250 MG, Q3HR, RESPIRATORY, 5 UG, RESPIRATORY
     Route: 055
     Dates: end: 20100201
  2. VENTAVIS [Suspect]
     Indication: PULMONARY HYPERTENSION
     Dosage: 0.250 MG, Q3HR, RESPIRATORY, 5 UG, RESPIRATORY
     Route: 055
     Dates: start: 20100131

REACTIONS (5)
  - ADRENAL INSUFFICIENCY [None]
  - CONDITION AGGRAVATED [None]
  - DISEASE PROGRESSION [None]
  - PULMONARY HYPERTENSION [None]
  - RENAL FAILURE [None]
